FAERS Safety Report 25363999 (Version 1)
Quarter: 2025Q2

REPORT INFORMATION
  Report Type: Spontaneous
  Country: IT (occurrence: IT)
  Receive Date: 20250527
  Receipt Date: 20250527
  Transmission Date: 20250716
  Serious: Yes (Death)
  Sender: MYLAN
  Company Number: IT-MYLANLABS-2025M1043754

PATIENT
  Age: 42 Year
  Sex: Male

DRUGS (8)
  1. LYRICA [Suspect]
     Active Substance: PREGABALIN
     Indication: Product used for unknown indication
  2. LYRICA [Suspect]
     Active Substance: PREGABALIN
     Route: 065
  3. LYRICA [Suspect]
     Active Substance: PREGABALIN
     Route: 065
  4. LYRICA [Suspect]
     Active Substance: PREGABALIN
  5. RIVOTRIL [Suspect]
     Active Substance: CLONAZEPAM
     Indication: Product used for unknown indication
  6. RIVOTRIL [Suspect]
     Active Substance: CLONAZEPAM
     Route: 065
  7. RIVOTRIL [Suspect]
     Active Substance: CLONAZEPAM
     Route: 065
  8. RIVOTRIL [Suspect]
     Active Substance: CLONAZEPAM

REACTIONS (2)
  - Completed suicide [Fatal]
  - Overdose [Unknown]
